FAERS Safety Report 4488361-9 (Version None)
Quarter: 2004Q4

REPORT INFORMATION
  Report Type: 
  Country: None (occurrence: None)
  Receive Date: 20041026
  Receipt Date: 20041018
  Transmission Date: 20050328
  Serious: Yes (Death, Other)
  Sender: FDA-Public Use
  Company Number: 200415033BCC

PATIENT
  Sex: Female
  Weight: 61.2356 kg

DRUGS (1)
  1. ASPIRIN [Suspect]

REACTIONS (1)
  - GASTRIC ULCER HAEMORRHAGE [None]
